FAERS Safety Report 8576451 (Version 3)
Quarter: 2013Q3

REPORT INFORMATION
  Report Type: Report from Study
  Country: CA (occurrence: CA)
  Receive Date: 20120523
  Receipt Date: 20130726
  Transmission Date: 20140515
  Serious: Yes (Hospitalization, Other)
  Sender: FDA-Public Use
  Company Number: PHHY2012CA017279

PATIENT
  Age: 74 Year
  Sex: Female

DRUGS (2)
  1. SANDOSTATIN LAR [Suspect]
     Indication: METASTATIC CARCINOID TUMOUR
     Dosage: 50 MG, QMO
     Route: 030
     Dates: start: 20001115
  2. RISPERIDONE [Concomitant]

REACTIONS (13)
  - Dementia [Unknown]
  - Nasal neoplasm [Unknown]
  - Pelvic mass [Unknown]
  - Delusional perception [Unknown]
  - Uterine enlargement [Unknown]
  - Paranoia [Unknown]
  - Diabetes mellitus [Unknown]
  - Metastases to liver [Unknown]
  - Hearing impaired [Unknown]
  - Visual impairment [Unknown]
  - Tumour pain [Unknown]
  - Weight decreased [Unknown]
  - Feeling abnormal [Unknown]
